FAERS Safety Report 9368945 (Version 1)
Quarter: 2013Q2

REPORT INFORMATION
  Report Type: Spontaneous
  Country: US (occurrence: None)
  Receive Date: 20130621
  Receipt Date: 20130621
  Transmission Date: 20140414
  Serious: Yes (Death, Hospitalization)
  Sender: FDA-Public Use
  Company Number: KAD201306-000727

PATIENT
  Age: 41 Year
  Sex: Female

DRUGS (1)
  1. AMPHOTERICIN B [Suspect]
     Indication: HISTOPLASMOSIS DISSEMINATED

REACTIONS (3)
  - Histoplasmosis disseminated [None]
  - Disease progression [None]
  - Off label use [None]
